FAERS Safety Report 25442767 (Version 1)
Quarter: 2025Q2

REPORT INFORMATION
  Report Type: Spontaneous
  Country: CO (occurrence: CO)
  Receive Date: 20250617
  Receipt Date: 20250617
  Transmission Date: 20250717
  Serious: Yes (Disabling)
  Sender: NOVO NORDISK
  Company Number: CO-NOVOPROD-1454873

PATIENT
  Sex: Female

DRUGS (3)
  1. SAXENDA [Suspect]
     Active Substance: LIRAGLUTIDE
     Indication: Overweight
     Dosage: 0.6 MG, QD
     Route: 058
     Dates: start: 20250603, end: 20250605
  2. SAXENDA [Suspect]
     Active Substance: LIRAGLUTIDE
     Indication: Multimorbidity
  3. LANSOPRAZOLE [Concomitant]
     Active Substance: LANSOPRAZOLE
     Indication: Gastritis
     Route: 048

REACTIONS (6)
  - Hypotension [Not Recovered/Not Resolved]
  - Pain [Not Recovered/Not Resolved]
  - Hyperhidrosis [Not Recovered/Not Resolved]
  - Diarrhoea [Not Recovered/Not Resolved]
  - Headache [Recovered/Resolved]
  - Gastritis [Not Recovered/Not Resolved]

NARRATIVE: CASE EVENT DATE: 20250603
